FAERS Safety Report 7589864-0 (Version None)
Quarter: 2011Q3

REPORT INFORMATION
  Report Type: 
  Country: None (occurrence: None)
  Receive Date: 20110705
  Receipt Date: 20110624
  Transmission Date: 20111222
  Serious: Yes (Disabling)
  Sender: FDA-Public Use
  Company Number: US-MERCK-1106USA03614

PATIENT
  Sex: Female

DRUGS (2)
  1. ALENDRONATE SODIUM [Suspect]
     Route: 065
  2. FOSAMAX [Suspect]
     Route: 048
     Dates: start: 20030101, end: 20080101

REACTIONS (1)
  - FEMUR FRACTURE [None]
